FAERS Safety Report 9863463 (Version 1)
Quarter: 2014Q1

REPORT INFORMATION
  Report Type: Spontaneous
  Country: GB (occurrence: GB)
  Receive Date: 20140203
  Receipt Date: 20140203
  Transmission Date: 20141002
  Serious: Yes (Hospitalization, Other)
  Sender: FDA-Public Use
  Company Number: PHHY2014GB011652

PATIENT
  Sex: Female

DRUGS (4)
  1. CICLOSPORIN [Suspect]
     Indication: IMMUNOSUPPRESSION
     Dosage: 200 MG, PER DAY
  2. PREDNISOLONE [Suspect]
     Indication: IMMUNOSUPPRESSION
     Dosage: 100 MG, PER DAY
  3. AZATHIOPRINE [Suspect]
     Indication: IMMUNOSUPPRESSION
  4. CORTICOSTEROIDS [Suspect]

REACTIONS (7)
  - Vaginal haemorrhage [Unknown]
  - Abortion spontaneous [Unknown]
  - Liver transplant rejection [Unknown]
  - Transaminases abnormal [Recovered/Resolved]
  - Malaise [Unknown]
  - Complications of transplanted liver [Unknown]
  - Exposure during pregnancy [Unknown]
